FAERS Safety Report 21596049 (Version 4)
Quarter: 2022Q4

REPORT INFORMATION
  Report Type: Spontaneous
  Country: IE (occurrence: IE)
  Receive Date: 20221115
  Receipt Date: 20221202
  Transmission Date: 20230113
  Serious: No
  Sender: FDA-Public Use
  Company Number: IE-MYLANLABS-2022M1124606

PATIENT
  Sex: Male
  Weight: 65 kg

DRUGS (4)
  1. CLOZARIL [Suspect]
     Active Substance: CLOZAPINE
     Indication: Schizophrenia
     Dosage: 175 MILLIGRAM, BID (125 NOCTE AND  50 MG MANE)
     Route: 048
     Dates: start: 20200708, end: 20221114
  2. CLOZARIL [Suspect]
     Active Substance: CLOZAPINE
     Dosage: UNK
     Route: 065
     Dates: start: 20221102
  3. VALPROATE SODIUM [Concomitant]
     Active Substance: VALPROATE SODIUM
     Dosage: 100 MILLIGRAM, HS
     Route: 065
  4. AMISULPRIDE [Concomitant]
     Active Substance: AMISULPRIDE
     Dosage: 400 MILLIGRAM, HS
     Route: 048

REACTIONS (2)
  - Vomiting [Unknown]
  - Antipsychotic drug level decreased [Unknown]
